FAERS Safety Report 4725752-2 (Version None)
Quarter: 2005Q3

REPORT INFORMATION
  Report Type: 
  Country: None (occurrence: None)
  Receive Date: 20050727
  Receipt Date: 20050725
  Transmission Date: 20060218
  Serious: Yes (Death)
  Sender: FDA-Public Use
  Company Number: PHBS2005JP10614

PATIENT

DRUGS (1)
  1. VOLTAREN [Suspect]
     Indication: SUBARACHNOID HAEMORRHAGE
     Route: 054

REACTIONS (1)
  - VASOSPASM [None]
